FAERS Safety Report 18748345 (Version 1)
Quarter: 2021Q1

REPORT INFORMATION
  Report Type: Spontaneous
  Country: US (occurrence: US)
  Receive Date: 20210116
  Receipt Date: 20210116
  Transmission Date: 20210419
  Serious: No
  Sender: FDA-Public Use
  Company Number: US-AUROBINDO-AUR-APL-2020-024244

PATIENT
  Sex: Female

DRUGS (1)
  1. DEXAMFETAMINE+AMFETAMINE 10MG [Suspect]
     Active Substance: AMPHETAMINE\DEXTROAMPHETAMINE
     Indication: PRODUCT USED FOR UNKNOWN INDICATION
     Dosage: UNK
     Route: 065

REACTIONS (11)
  - Irritability [Unknown]
  - Anger [Unknown]
  - Drug ineffective [Unknown]
  - Muscle tightness [Unknown]
  - Attention deficit hyperactivity disorder [Unknown]
  - Chest pain [Unknown]
  - Dehydration [Unknown]
  - Disturbance in attention [Unknown]
  - Dry mouth [Unknown]
  - Mood swings [Unknown]
  - Depression [Unknown]
